FAERS Safety Report 9725871 (Version 1)
Quarter: 2013Q4

REPORT INFORMATION
  Report Type: Spontaneous
  Country: FR (occurrence: FR)
  Receive Date: 20131203
  Receipt Date: 20131203
  Transmission Date: 20140711
  Serious: Yes (Hospitalization)
  Sender: FDA-Public Use
  Company Number: FR-JNJFOC-20131117290

PATIENT
  Age: 74 Year
  Sex: Female

DRUGS (4)
  1. REMICADE [Suspect]
     Indication: RHEUMATOID ARTHRITIS
     Dosage: SEVENTY SIXTH INFUSION
     Route: 042
  2. METOJECT [Concomitant]
     Route: 065
  3. CORTANCYL [Concomitant]
     Route: 065
  4. HYDROCORTISONE [Concomitant]
     Route: 065

REACTIONS (2)
  - Pleural effusion [Recovered/Resolved]
  - Lung disorder [Recovered/Resolved]
